FAERS Safety Report 9399214 (Version 4)
Quarter: 2013Q4

REPORT INFORMATION
  Report Type: Spontaneous
  Country: GB (occurrence: None)
  Receive Date: 20130710
  Receipt Date: 20131122
  Transmission Date: 20140711
  Serious: Yes (Hospitalization)
  Sender: FDA-Public Use
  Company Number: AUR-APL-2013-05604

PATIENT
  Age: 15 Year
  Sex: Female
  Weight: 96 kg

DRUGS (5)
  1. METFORMIN [Suspect]
     Indication: POLYCYSTIC OVARIES
     Route: 048
  2. MEFENAMIC ACID [Suspect]
     Indication: ABDOMINAL PAIN
     Route: 048
     Dates: start: 201206, end: 201305
  3. MEFENAMIC ACID [Suspect]
     Indication: DYSMENORRHOEA
     Route: 048
     Dates: start: 201206, end: 201305
  4. MOVICOL (POLYETHYL GLYC. W/POTAS. CHLOR./SOD. BICARB.) [Concomitant]
  5. RANITIDINE (RANITIDINE) [Concomitant]

REACTIONS (4)
  - Abdominal pain [None]
  - Pancreatitis acute [None]
  - Dizziness [None]
  - Pancreatitis acute [None]
